FAERS Safety Report 7746270-3 (Version None)
Quarter: 2011Q3

REPORT INFORMATION
  Report Type: 
  Country: None (occurrence: None)
  Receive Date: 20110913
  Receipt Date: 20110902
  Transmission Date: 20111222
  Serious: Yes (Hospitalization)
  Sender: FDA-Public Use
  Company Number: ES-BRISTOL-MYERS SQUIBB COMPANY-15899560

PATIENT
  Age: 33 Year
  Sex: Male

DRUGS (4)
  1. LORAZEPAM [Suspect]
     Dosage: 1DF=1.UNIT NOT SPECIFIED
     Dates: start: 20100109
  2. AMISULPRIDE [Suspect]
     Dates: end: 20110531
  3. OLANZAPINE [Suspect]
     Dates: end: 20110531
  4. NONE [Suspect]
     Indication: SCHIZOPHRENIA
     Dosage: 15MG:UNK. 30MG:25JUN11-UNK.(23JUN11-01AUG11:30MG).
     Route: 048
     Dates: start: 20110623, end: 20110801

REACTIONS (1)
  - PSYCHOTIC DISORDER [None]
